FAERS Safety Report 24807654 (Version 4)
Quarter: 2025Q4

REPORT INFORMATION
  Report Type: Report from Study
  Country: EU (occurrence: EU)
  Receive Date: 20250105
  Receipt Date: 20251103
  Transmission Date: 20260118
  Serious: Yes (Hospitalization)
  Sender: ABBVIE
  Company Number: EU-ABBVIE-6057806

PATIENT
  Age: 76 Year
  Sex: Female

DRUGS (11)
  1. FOSCARBIDOPA\FOSLEVODOPA [Suspect]
     Active Substance: FOSCARBIDOPA\FOSLEVODOPA
     Indication: Parkinson^s disease
     Dosage: 240 MG + 12 MG, FREQUENCY: LOAD 0.6; HIGH 0.49; BASE 0.39; LOW 0.27; EX 0.15, ?LAST ADMINISTERED ...
     Route: 058
     Dates: start: 20241209
  2. FOSCARBIDOPA\FOSLEVODOPA [Suspect]
     Active Substance: FOSCARBIDOPA\FOSLEVODOPA
     Dosage: 240 MG + 12 MG, FREQUENCY: LOAD 0.6; HIGH 0.45; BASE 0.39; LOW 0.28; EX 0.2
     Route: 058
     Dates: start: 202412, end: 202412
  3. FOSCARBIDOPA\FOSLEVODOPA [Suspect]
     Active Substance: FOSCARBIDOPA\FOSLEVODOPA
     Dosage: 240 MG + 12 MG, FREQUENCY: LOAD 0.6; HIGH 0.49; BASE 0.37; LOW 0.27; EX 0.15
     Route: 058
     Dates: start: 202412, end: 20241220
  4. FOSCARBIDOPA\FOSLEVODOPA [Suspect]
     Active Substance: FOSCARBIDOPA\FOSLEVODOPA
     Dosage: 240 MG + 12 MG, FREQUENCY: LOAD 0.6; HIGH 0.40; BASE 0.34; LOW 0.30; EX 0.2
     Route: 058
     Dates: start: 20241220, end: 20241224
  5. RIVASTIGMINE [Concomitant]
     Active Substance: RIVASTIGMINE
     Indication: Product used for unknown indication
     Dosage: STRENGTH: 9.5 MILLIGRAM, 1 PATCH DAILY, START DATE: BEFORE DUODOPA
     Route: 062
  6. LISINOPRIL [Concomitant]
     Active Substance: LISINOPRIL
     Indication: Product used for unknown indication
     Dosage: STRENGTH: 20 MILLIGRAM, 1 TABLET IN THE MORNING, START DATE: BEFORE DUODOPA
  7. CIPRALEX [Concomitant]
     Active Substance: ESCITALOPRAM OXALATE
     Indication: Product used for unknown indication
     Dosage: STRENGTH: 10 MILLIGRAM, IN THE MORNING, START DATE: BEFORE DUODOPA,
  8. MIRTAZAPINE [Concomitant]
     Active Substance: MIRTAZAPINE
     Indication: Product used for unknown indication
     Dosage: STRENGTH: 15 MILLIGRAM, AT NIGHT, START DATE: BEFORE DUODOPA,
  9. QUETIAPINE [Concomitant]
     Active Substance: QUETIAPINE
     Indication: Product used for unknown indication
     Dosage: 4 TABLET
     Dates: start: 20241223
  10. QUETIAPINE [Concomitant]
     Active Substance: QUETIAPINE
     Indication: Product used for unknown indication
     Dosage: 1 TABLET
     Dates: end: 20241223
  11. QUETIAPINE [Concomitant]
     Active Substance: QUETIAPINE
     Indication: Product used for unknown indication
     Dosage: STRENGTH: 50 MILLIGRAM, 3 AT NIGHT + 1 IN THE MORNING, START DATE: BEFORE DUODOPA,

REACTIONS (9)
  - Dementia [Recovering/Resolving]
  - Confusional state [Recovered/Resolved]
  - Food refusal [Recovered/Resolved]
  - Psychomotor hyperactivity [Recovered/Resolved]
  - Therapeutic product effect incomplete [Unknown]
  - Aggression [Recovered/Resolved]
  - Musculoskeletal stiffness [Recovered/Resolved]
  - Hallucination [Recovered/Resolved]
  - Oral disorder [Recovered/Resolved]

NARRATIVE: CASE EVENT DATE: 20241217
